FAERS Safety Report 9783063 (Version 1)
Quarter: 2013Q4

REPORT INFORMATION
  Report Type: Spontaneous
  Country: FR (occurrence: None)
  Receive Date: 20131213
  Receipt Date: 20131213
  Transmission Date: 20140711
  Serious: Yes (Hospitalization, Disabling)
  Sender: FDA-Public Use
  Company Number: FK201305259

PATIENT
  Age: 33 Year
  Sex: Female

DRUGS (6)
  1. VOLUVEN [Suspect]
     Indication: ANAESTHESIA
     Dosage: 1.5 LIT, INTRAVENOUS (NOT OTHERWISE SPECIFIED)
     Route: 042
     Dates: start: 20131002, end: 20131002
  2. EXACYL [Suspect]
     Dosage: INTRAVENOUS (NOT OTHERWISE SPECIFIED)
     Route: 042
     Dates: start: 20131002, end: 20131002
  3. NALADOR [Suspect]
     Indication: ANAESTHESIA
     Dosage: 2 DOSAGE FORMS , INTRAVENOUS (NOT SPECIFIED)
     Route: 042
     Dates: start: 20131002, end: 20131002
  4. CLOTTAFACT [Suspect]
     Indication: ANAESTHESIA
     Dosage: 3 DOSAGE FORMS, INTRAVENOUS (NOT SPECIFIED)
     Route: 042
     Dates: start: 20131202, end: 20131202
  5. NOVOSEVEN [Suspect]
     Indication: ANAESTHESIA
     Dosage: 5 MG , INTRAVEOUS (NOT SPECIFIED)
     Route: 042
     Dates: start: 20131002, end: 20131002
  6. RINGER LACTATE VIAFLO [Suspect]
     Indication: ANAESTHESIA
     Dosage: 3 LIT , INTRAVENOUS (NOT SPECIFIED)
     Route: 042
     Dates: start: 20121002, end: 20131002

REACTIONS (19)
  - Renal failure acute [None]
  - Renal cortical necrosis [None]
  - Maternal exposure during delivery [None]
  - Caesarean section [None]
  - Blood pressure increased [None]
  - Haemoglobin decreased [None]
  - Proteinuria [None]
  - Disseminated intravascular coagulation [None]
  - Acute pulmonary oedema [None]
  - Cardiac disorder [None]
  - Ejection fraction decreased [None]
  - Mitral valve incompetence [None]
  - Pulmonary arterial hypertension [None]
  - Haemodialysis [None]
  - Red blood cell schistocytes present [None]
  - Hepatocellular injury [None]
  - Renal tubular necrosis [None]
  - Shock haemorrhagic [None]
  - Procedural haemorrhage [None]
